FAERS Safety Report 5364159-4 (Version None)
Quarter: 2007Q2

REPORT INFORMATION
  Report Type: 
  Country: None (occurrence: None)
  Receive Date: 20070620
  Receipt Date: 20070613
  Transmission Date: 20071010
  Serious: Yes (Other)
  Sender: FDA-Public Use
  Company Number: NLWYE494319APR07

PATIENT
  Sex: Female
  Weight: 60 kg

DRUGS (2)
  1. EFFEXOR [Suspect]
     Indication: DEPRESSION
     Route: 048
     Dates: start: 20060301
  2. EFFEXOR [Suspect]
     Indication: DYSTHYMIC DISORDER
     Route: 048
     Dates: end: 20070501

REACTIONS (1)
  - SUICIDAL IDEATION [None]
